FAERS Safety Report 24996015 (Version 1)
Quarter: 2025Q1

REPORT INFORMATION
  Report Type: Spontaneous
  Country: US (occurrence: US)
  Receive Date: 20250221
  Receipt Date: 20250221
  Transmission Date: 20250408
  Serious: No
  Sender: CATALYST PHARMA
  Company Number: US-CATALYST PHARMACEUTICALS-US-CATA-24-01240

PATIENT
  Age: 13 Year
  Sex: Male
  Weight: 58.503 kg

DRUGS (4)
  1. AGAMREE [Suspect]
     Active Substance: VAMOROLONE
     Indication: Duchenne muscular dystrophy
     Dosage: 7.5 ML ONCE A DAY
     Route: 048
     Dates: start: 20240329
  2. LISINOPRIL [Concomitant]
     Active Substance: LISINOPRIL
     Indication: Cardiovascular disorder
     Dosage: 2.5 MG ONCE A DAY
     Route: 065
  3. VITAMINS [Concomitant]
     Active Substance: VITAMINS
     Indication: Hypovitaminosis
     Dosage: 1 TABLET ONCE A DAY
     Route: 065
  4. VITAMIN D COMPLETE [Concomitant]
     Indication: Hypovitaminosis
     Dosage: 1 TABLET ONCE A DAY
     Route: 065

REACTIONS (1)
  - Osteoporosis [Not Recovered/Not Resolved]

NARRATIVE: CASE EVENT DATE: 20241001
